FAERS Safety Report 6538092-6 (Version None)
Quarter: 2010Q1

REPORT INFORMATION
  Report Type: 
  Country: None (occurrence: None)
  Receive Date: 20100114
  Receipt Date: 20100104
  Transmission Date: 20100710
  Serious: Yes (Death)
  Sender: FDA-Public Use
  Company Number: US-PFIZER INC-2010000549

PATIENT
  Age: 25 Year
  Sex: Female

DRUGS (6)
  1. SERTRALINE HCL [Suspect]
     Route: 048
  2. TOPIRAMATE [Suspect]
     Route: 048
  3. ETHANOL [Suspect]
     Route: 048
  4. BUPROPION [Suspect]
     Route: 048
  5. OLANZAPINE [Suspect]
     Route: 048
  6. ACETAMINOPHEN AND HYDROCODONE BITARTRATE [Suspect]
     Route: 048

REACTIONS (3)
  - CARDIAC ARREST [None]
  - RESPIRATORY ARREST [None]
  - WITHDRAWAL SYNDROME [None]
